FAERS Safety Report 19054670 (Version 1)
Quarter: 2021Q1

REPORT INFORMATION
  Report Type: Spontaneous
  Country: US (occurrence: US)
  Receive Date: 20210325
  Receipt Date: 20210325
  Transmission Date: 20210420
  Serious: Yes (Other)
  Sender: FDA-Public Use
  Company Number: US-JNJFOC-20210335484

PATIENT
  Sex: Male
  Weight: 74.91 kg

DRUGS (1)
  1. IMODIUM A?D [Suspect]
     Active Substance: LOPERAMIDE HYDROCHLORIDE
     Indication: DIARRHOEA
     Dosage: 2 ON THE FIRST 1 AFTER 4X A DAY
     Route: 048
     Dates: start: 20210311, end: 20210314

REACTIONS (2)
  - Overdose [Unknown]
  - Drug ineffective [Unknown]
